FAERS Safety Report 4599541-6 (Version None)
Quarter: 2005Q1

REPORT INFORMATION
  Report Type: 
  Country: None (occurrence: None)
  Receive Date: 20050303
  Receipt Date: 20050217
  Transmission Date: 20050727
  Serious: Yes (Other)
  Sender: FDA-Public Use
  Company Number: HQWYE472222FEB05

PATIENT
  Sex: Female

DRUGS (1)
  1. PREMARIN [Suspect]
     Dosage: 0.625MG FREQUENCY NOT SPECIFIED, ORAL
     Route: 048

REACTIONS (3)
  - DRUG INTERACTION [None]
  - SPEECH DISORDER [None]
  - THROAT TIGHTNESS [None]
